FAERS Safety Report 17433627 (Version 2)
Quarter: 2020Q1

REPORT INFORMATION
  Report Type: Spontaneous
  Country: AU (occurrence: AU)
  Receive Date: 20200219
  Receipt Date: 20200325
  Transmission Date: 20200409
  Serious: Yes (Congenital Anomaly)
  Sender: FDA-Public Use
  Company Number: AU-BIOGEN-2020BI00839101

PATIENT
  Weight: 2.23 kg

DRUGS (2)
  1. TYSABRI [Suspect]
     Active Substance: NATALIZUMAB
     Indication: MATERNAL EXPOSURE TIMING UNSPECIFIED
     Route: 064
  2. TYSABRI [Suspect]
     Active Substance: NATALIZUMAB
     Route: 064

REACTIONS (5)
  - Exposure via breast milk [Unknown]
  - Foetal exposure during pregnancy [Recovered/Resolved]
  - Anaemia neonatal [Unknown]
  - Low birth weight baby [Unknown]
  - Premature baby [Unknown]
